FAERS Safety Report 24640646 (Version 1)
Quarter: 2024Q4

REPORT INFORMATION
  Report Type: Spontaneous
  Country: JP (occurrence: JP)
  Receive Date: 20241120
  Receipt Date: 20241120
  Transmission Date: 20250115
  Serious: Yes (Life-Threatening, Hospitalization, Disabling, Other)
  Sender: ROCHE
  Company Number: JP-CHUGAI-2024006618

PATIENT
  Age: 54 Year
  Sex: Female
  Weight: 51.3 kg

DRUGS (17)
  1. KADCYLA [Suspect]
     Active Substance: ADO-TRASTUZUMAB EMTANSINE
     Indication: Breast cancer
     Dosage: UNK
     Route: 065
     Dates: start: 20210907, end: 20230314
  2. KADCYLA [Suspect]
     Active Substance: ADO-TRASTUZUMAB EMTANSINE
     Indication: Product used for unknown indication
     Route: 042
     Dates: start: 20230801, end: 20240116
  3. KADCYLA [Suspect]
     Active Substance: ADO-TRASTUZUMAB EMTANSINE
     Route: 042
  4. PREDONINE [Suspect]
     Active Substance: PREDNISOLONE
     Indication: Pulmonary toxicity
     Route: 048
     Dates: end: 20230410
  5. PREDONINE [Suspect]
     Active Substance: PREDNISOLONE
     Route: 048
     Dates: end: 20230520
  6. ALFAROL Capsule Unknown [Concomitant]
     Route: 048
     Dates: start: 20230429, end: 20230429
  7. XELODA [Concomitant]
     Active Substance: CAPECITABINE
     Dates: start: 202101
  8. CALCIUM CARBONATE\CHOLECALCIFEROL\MAGNESIUM CARBONATE [Concomitant]
     Active Substance: CALCIUM CARBONATE\CHOLECALCIFEROL\MAGNESIUM CARBONATE
  9. LAC B [BIFIDOBACTERIUM LACTIS] [Concomitant]
  10. LOXOPROFEN SODIUM DIHYDRATE [Concomitant]
     Active Substance: LOXOPROFEN SODIUM DIHYDRATE
  11. REBAMIPIDE [Concomitant]
     Active Substance: REBAMIPIDE
  12. FAMOTIDINE [Concomitant]
     Active Substance: FAMOTIDINE
  13. ACETAMINOPHEN\TRAMADOL HYDROCHLORIDE [Concomitant]
     Active Substance: ACETAMINOPHEN\TRAMADOL HYDROCHLORIDE
  14. FUROSEMIDE [Concomitant]
     Active Substance: FUROSEMIDE
  15. ALLOID G [Concomitant]
     Active Substance: SODIUM ALGINATE
  16. SODIUM PICOSULFATE [Concomitant]
     Active Substance: SODIUM PICOSULFATE
  17. SPIRONOLACTONE [Concomitant]
     Active Substance: SPIRONOLACTONE

REACTIONS (50)
  - Hepatic function abnormal [Not Recovered/Not Resolved]
  - Splenomegaly [Not Recovered/Not Resolved]
  - Ascites [Not Recovered/Not Resolved]
  - Hepatic cirrhosis [Not Recovered/Not Resolved]
  - Varices oesophageal [Not Recovered/Not Resolved]
  - Metabolic dysfunction-associated liver disease [Not Recovered/Not Resolved]
  - Anaemia [Recovered/Resolved]
  - Red blood cell count decreased [Recovered/Resolved]
  - Aspartate aminotransferase increased [Not Recovered/Not Resolved]
  - Alanine aminotransferase increased [Not Recovered/Not Resolved]
  - Blood lactate dehydrogenase increased [Unknown]
  - Platelet count decreased [Not Recovered/Not Resolved]
  - Gamma-glutamyltransferase increased [Not Recovered/Not Resolved]
  - Portal hypertension [Not Recovered/Not Resolved]
  - Hypoalbuminaemia [Not Recovered/Not Resolved]
  - Eosinophilia [Recovered/Resolved]
  - C-reactive protein increased [Not Recovered/Not Resolved]
  - Monocyte count increased [Recovered/Resolved]
  - Hypoproteinaemia [Recovered/Resolved]
  - Blood cholinesterase decreased [Recovered/Resolved]
  - Pleural effusion [Recovered/Resolved]
  - Blood bilirubin unconjugated increased [Recovered/Resolved]
  - Blood creatine phosphokinase increased [Recovered/Resolved]
  - Basophil count increased [Recovered/Resolved]
  - Urobilinogen urine [Recovered/Resolved]
  - Hypocalcaemia [Unknown]
  - Hypoalbuminaemia [Not Recovered/Not Resolved]
  - Constipation [Recovered/Resolved]
  - Hypokalaemia [Recovered/Resolved]
  - Decreased appetite [Not Recovered/Not Resolved]
  - Neutrophil count decreased [Recovered/Resolved]
  - White blood cell count decreased [Recovered/Resolved]
  - Blood bilirubin increased [Recovered/Resolved]
  - Pulmonary toxicity [Recovered/Resolved]
  - Myalgia [Recovered/Resolved]
  - Iron deficiency anaemia [Recovered/Resolved]
  - Blood alkaline phosphatase increased [Not Recovered/Not Resolved]
  - Dyspnoea exertional [Unknown]
  - CREST syndrome [Not Recovered/Not Resolved]
  - Scleroderma [Not Recovered/Not Resolved]
  - Azotaemia [Recovered/Resolved]
  - Gastric ulcer [Recovered/Resolved]
  - KL-6 increased [Recovered/Resolved]
  - Hiatus hernia [Not Recovered/Not Resolved]
  - Hyponatraemia [Recovered/Resolved]
  - Pneumocystis jirovecii pneumonia [Recovered/Resolved]
  - Weight increased [Recovered/Resolved]
  - Gastrooesophageal reflux disease [Not Recovered/Not Resolved]
  - Duodenitis [Recovered/Resolved]
  - Urticaria [Recovered/Resolved]

NARRATIVE: CASE EVENT DATE: 20210907
